FAERS Safety Report 10166272 (Version 3)
Quarter: 2014Q3

REPORT INFORMATION
  Report Type: Spontaneous
  Country: IT (occurrence: IT)
  Receive Date: 20140512
  Receipt Date: 20140728
  Transmission Date: 20150326
  Serious: Yes (Hospitalization)
  Sender: FDA-Public Use
  Company Number: IT-009507513-1405ITA004590

PATIENT
  Age: 68 Year
  Sex: Female

DRUGS (8)
  1. TAVOR [Suspect]
     Active Substance: LORAZEPAM
     Indication: MEDICATION ERROR
     Dosage: 1 MG, FREQUENCY: TOTAL
     Route: 048
     Dates: start: 20140428, end: 20140428
  2. TOLEP [Suspect]
     Active Substance: OXCARBAZEPINE
     Dosage: UNK
     Route: 048
     Dates: start: 2014
  3. TAVOR [Suspect]
     Active Substance: LORAZEPAM
     Dosage: UNK
     Route: 048
     Dates: start: 2014
  4. TOLEP [Suspect]
     Active Substance: OXCARBAZEPINE
     Indication: MEDICATION ERROR
     Dosage: UNK
     Route: 048
     Dates: start: 20140428, end: 20140428
  5. FELISON [Concomitant]
     Active Substance: FLURAZEPAM MONOHYDROCHLORIDE
  6. MIRTAZAPINE. [Suspect]
     Active Substance: MIRTAZAPINE
     Indication: MEDICATION ERROR
     Dosage: 30 MG, FREQUENCY: TOTAL
     Route: 048
     Dates: start: 20140428, end: 20140428
  7. MIRTAZAPINE. [Suspect]
     Active Substance: MIRTAZAPINE
     Dosage: UNK
     Route: 048
     Dates: start: 2014
  8. MIRAPEXIN [Concomitant]
     Active Substance: PRAMIPEXOLE

REACTIONS (2)
  - Somnolence [Recovered/Resolved]
  - Drug administration error [Recovered/Resolved]

NARRATIVE: CASE EVENT DATE: 20140428
